FAERS Safety Report 7655485-4 (Version None)
Quarter: 2011Q3

REPORT INFORMATION
  Report Type: 
  Country: None (occurrence: None)
  Receive Date: 20110804
  Receipt Date: 20110727
  Transmission Date: 20111222
  Serious: Yes (Other)
  Sender: FDA-Public Use
  Company Number: AU-ASTELLAS-2011JP005201

PATIENT
  Sex: Female
  Weight: 100 kg

DRUGS (7)
  1. TACROLIMUS [Suspect]
     Dosage: 5.5 MG, BID
     Route: 065
  2. AZATHIOPRINE [Concomitant]
     Route: 065
  3. TACROLIMUS [Suspect]
     Dosage: 13 MG, UNKNOWN/D
     Route: 065
     Dates: start: 20110316
  4. METOPROLOL SUCCINATE [Concomitant]
     Route: 065
  5. TACROLIMUS [Suspect]
     Dosage: 5 MG, BID
     Route: 065
  6. CHOLECALCIFEROL [Concomitant]
     Route: 065
  7. CALCIUM ACETATE [Concomitant]
     Route: 065

REACTIONS (1)
  - CHOREA [None]
